FAERS Safety Report 6936598-9 (Version None)
Quarter: 2010Q3

REPORT INFORMATION
  Report Type: 
  Country: None (occurrence: None)
  Receive Date: 20100823
  Receipt Date: 20100810
  Transmission Date: 20110219
  Serious: Yes (Hospitalization, Other)
  Sender: FDA-Public Use
  Company Number: US-ROCHE-720948

PATIENT
  Age: 78 Year
  Sex: Female

DRUGS (4)
  1. HERCEPTIN [Suspect]
     Indication: BREAST CANCER
     Route: 042
     Dates: start: 20100401
  2. HERCEPTIN [Suspect]
     Route: 042
  3. CYTOXAN [Suspect]
     Indication: BREAST CANCER
     Route: 042
     Dates: start: 20100401
  4. TAXOTERE [Concomitant]
     Indication: BREAST CANCER
     Route: 042

REACTIONS (6)
  - LYMPHADENOPATHY [None]
  - LYMPHADENOPATHY MEDIASTINAL [None]
  - MALAISE [None]
  - NEUTROPENIA [None]
  - PYREXIA [None]
  - SKIN LESION [None]
